FAERS Safety Report 4978754-5 (Version None)
Quarter: 2006Q2

REPORT INFORMATION
  Report Type: 
  Country: None (occurrence: None)
  Receive Date: 20060420
  Receipt Date: 20050112
  Transmission Date: 20061013
  Serious: Yes (Death)
  Sender: FDA-Public Use
  Company Number: US-MERCK-0501USA01886

PATIENT
  Age: 50 Year
  Sex: Male

DRUGS (1)
  1. VIOXX [Suspect]
     Indication: ARTHROSCOPY
     Route: 048
     Dates: start: 20040201, end: 20040919

REACTIONS (2)
  - ADVERSE EVENT [None]
  - POLYTRAUMATISM [None]
